FAERS Safety Report 7078279-X (Version None)
Quarter: 2010Q4

REPORT INFORMATION
  Report Type: 
  Country: None (occurrence: None)
  Receive Date: 20101101
  Receipt Date: 20101101
  Transmission Date: 20110411
  Serious: Yes (Hospitalization)
  Sender: FDA-Public Use
  Company Number: None

PATIENT
  Sex: Male
  Weight: 212.9 kg

DRUGS (4)
  1. FLUOROURACIL [Suspect]
     Dosage: 5610 MG
     Dates: end: 20101014
  2. BEVACIZUMAB (RHUMAB VEGF) [Suspect]
     Dosage: 1045 MG
     Dates: end: 20101012
  3. LEUCOVORIN CALCIUM [Suspect]
     Dosage: 1200 MG
     Dates: end: 20101012
  4. ELOXATIN [Suspect]
     Dosage: 195 MG
     Dates: end: 20101012

REACTIONS (4)
  - ASTHENIA [None]
  - BLOOD CREATININE INCREASED [None]
  - BLOOD POTASSIUM INCREASED [None]
  - URINE PROTEIN/CREATININE RATIO INCREASED [None]
